FAERS Safety Report 16711662 (Version 1)
Quarter: 2019Q3

REPORT INFORMATION
  Report Type: Report from Study
  Country: BR (occurrence: BR)
  Receive Date: 20190816
  Receipt Date: 20190816
  Transmission Date: 20191004
  Serious: Yes (Other)
  Sender: FDA-Public Use
  Company Number: BR-UCBSA-2019029122

PATIENT
  Age: 61 Year
  Sex: Female
  Weight: 73 kg

DRUGS (2)
  1. CERTOLIZUMAB PEGOL [Suspect]
     Active Substance: CERTOLIZUMAB PEGOL
     Indication: RHEUMATOID ARTHRITIS
     Dosage: 400 MILLIGRAM, EV 30 DAYS
     Route: 058
  2. LOSARTANA POTASSICA [Concomitant]
     Active Substance: LOSARTAN
     Indication: HYPERTENSION
     Dosage: UNK
     Route: 048
     Dates: start: 2013

REACTIONS (4)
  - Thermal burn [Not Recovered/Not Resolved]
  - Pain [Recovered/Resolved]
  - Headache [Not Recovered/Not Resolved]
  - Helicobacter infection [Recovering/Resolving]

NARRATIVE: CASE EVENT DATE: 20190624
